FAERS Safety Report 9174329 (Version 1)
Quarter: 2013Q1

REPORT INFORMATION
  Report Type: Spontaneous
  Country: US (occurrence: None)
  Receive Date: 20130314
  Receipt Date: 20130314
  Transmission Date: 20140127
  Serious: Yes (Other)
  Sender: FDA-Public Use
  Company Number: PR-AE13-000209

PATIENT
  Age: 31 Year
  Sex: Female

DRUGS (3)
  1. BC POWDER (ASPIRIN 845 MG/CAFFEINE 65 MG) [Suspect]
     Dosage: 1 POWDER, 1 USE, ORALLY
     Route: 048
     Dates: start: 20130224
  2. LAMICTAL (LAMOTRIGINE) TABLET [Concomitant]
  3. GABAPENTIN (NEURONTIN) [Concomitant]

REACTIONS (3)
  - Dyspnoea [None]
  - Pruritus [None]
  - Urticaria [None]
